FAERS Safety Report 15421663 (Version 1)
Quarter: 2018Q3

REPORT INFORMATION
  Report Type: Spontaneous
  Country: US (occurrence: US)
  Receive Date: 20180924
  Receipt Date: 20180924
  Transmission Date: 20181010
  Serious: No
  Sender: FDA-Public Use
  Company Number: US-GLAXOSMITHKLINE-US2018GSK168798

PATIENT
  Sex: Female

DRUGS (1)
  1. ADVAIR DISKUS [Suspect]
     Active Substance: FLUTICASONE PROPIONATE\SALMETEROL XINAFOATE
     Indication: ASTHMA
     Dosage: 1 PUFF(S), BID
     Route: 048

REACTIONS (6)
  - Drug dose omission [Recovered/Resolved]
  - Fatigue [Recovering/Resolving]
  - Somnolence [Unknown]
  - Product quality issue [Unknown]
  - Oxygen saturation decreased [Recovering/Resolving]
  - Wrong technique in device usage process [Unknown]
